FAERS Safety Report 10813597 (Version 9)
Quarter: 2017Q3

REPORT INFORMATION
  Report Type: Spontaneous
  Country: US (occurrence: US)
  Receive Date: 20150218
  Receipt Date: 20170912
  Transmission Date: 20171127
  Serious: Yes (Hospitalization, Other)
  Sender: FDA-Public Use
  Company Number: US-PFIZER INC-2015059721

PATIENT
  Age: 81 Year
  Sex: Female
  Weight: 33 kg

DRUGS (7)
  1. VALCYTE [Concomitant]
     Active Substance: VALGANCICLOVIR HYDROCHLORIDE
     Dosage: UNK
  2. AROMASIN [Suspect]
     Active Substance: EXEMESTANE
     Dosage: 5 MG, UNK
     Route: 048
  3. SUCRALFATE. [Concomitant]
     Active Substance: SUCRALFATE
     Indication: ABDOMINAL PAIN UPPER
     Dosage: 1 G, UNK
  4. AROMASIN [Suspect]
     Active Substance: EXEMESTANE
     Indication: BREAST CANCER METASTATIC
     Dosage: 25 MG, ONE A NIGHT
     Route: 048
     Dates: start: 2012
  5. SUCRALFATE. [Concomitant]
     Active Substance: SUCRALFATE
     Indication: NAUSEA
  6. AROMASIN [Suspect]
     Active Substance: EXEMESTANE
     Dosage: 25 MG, ONCE DAILY
     Route: 048
     Dates: start: 2013
  7. AROMASIN [Suspect]
     Active Substance: EXEMESTANE
     Dosage: UNK, 1X/DAY
     Route: 048

REACTIONS (9)
  - Vomiting [Unknown]
  - Weight decreased [Not Recovered/Not Resolved]
  - Impaired gastric emptying [Not Recovered/Not Resolved]
  - Night sweats [Recovered/Resolved]
  - Ulcer haemorrhage [Recovered/Resolved]
  - Decreased appetite [Unknown]
  - Eating disorder [Unknown]
  - Memory impairment [Recovered/Resolved]
  - Iron deficiency [Unknown]

NARRATIVE: CASE EVENT DATE: 2013
